FAERS Safety Report 5285847-4 (Version None)
Quarter: 2007Q1

REPORT INFORMATION
  Report Type: 
  Country: None (occurrence: None)
  Receive Date: 20070329
  Receipt Date: 20070318
  Transmission Date: 20070707
  Serious: Yes (Hospitalization)
  Sender: FDA-Public Use
  Company Number: 2007312007

PATIENT
  Age: 54 Year
  Sex: Female
  Weight: 60.8 kg

DRUGS (1)
  1. ROGAINE [Suspect]
     Indication: ALOPECIA
     Dosage: 1 ML TWICE DAILY (1 ML, 2 IN 1 D), TOPICAL
     Route: 061
     Dates: start: 20061201, end: 20070309

REACTIONS (3)
  - BURNING SENSATION [None]
  - ERYTHEMA [None]
  - SURGERY [None]
